FAERS Safety Report 19416493 (Version 1)
Quarter: 2021Q2

REPORT INFORMATION
  Report Type: Spontaneous
  Country: CN (occurrence: CN)
  Receive Date: 20210614
  Receipt Date: 20210614
  Transmission Date: 20210717
  Serious: Yes (Hospitalization, Other)
  Sender: FDA-Public Use
  Company Number: CN-PFIZER INC-2021658791

PATIENT
  Age: 6 Year
  Sex: Female
  Weight: 23 kg

DRUGS (8)
  1. CYTOSAR [Suspect]
     Active Substance: CYTARABINE
     Dosage: 0.055 G, 1X/DAY
     Route: 041
     Dates: start: 20210530, end: 20210602
  2. SODIUM CHLORIDE 0.9% [Concomitant]
     Active Substance: SODIUM CHLORIDE
     Dosage: 6 ML, 1X/DAY
     Route: 037
     Dates: start: 20210530, end: 20210530
  3. SODIUM CHLORIDE 0.9% [Concomitant]
     Active Substance: SODIUM CHLORIDE
     Indication: VEHICLE SOLUTION USE
     Dosage: 100 ML, 1X/DAY
     Route: 041
     Dates: start: 20210529, end: 20210529
  4. CYTOSAR [Suspect]
     Active Substance: CYTARABINE
     Indication: ACUTE LYMPHOCYTIC LEUKAEMIA
     Dosage: 0.03 G, 1X/DAY
     Route: 037
     Dates: start: 20210530, end: 20210530
  5. ENDOXAN [CYCLOPHOSPHAMIDE] [Suspect]
     Active Substance: CYCLOPHOSPHAMIDE
     Indication: ACUTE LYMPHOCYTIC LEUKAEMIA
     Dosage: 0.73 G, 1X/DAY
     Route: 041
     Dates: start: 20210529, end: 20210529
  6. SODIUM CHLORIDE 0.9% [Concomitant]
     Active Substance: SODIUM CHLORIDE
     Dosage: 20 ML, 1X/DAY
     Route: 041
     Dates: start: 20210530, end: 20210602
  7. METHOTREXATE. [Suspect]
     Active Substance: METHOTREXATE
     Indication: ACUTE LYMPHOCYTIC LEUKAEMIA
     Dosage: 12 MG, 1X/DAY
     Route: 037
     Dates: start: 20210530, end: 20210530
  8. DEXAMETHASONE SODIUM PHOSPHATE. [Suspect]
     Active Substance: DEXAMETHASONE SODIUM PHOSPHATE
     Indication: ACUTE LYMPHOCYTIC LEUKAEMIA
     Dosage: 5 MG, 1X/DAY
     Route: 037
     Dates: start: 20210530, end: 20210530

REACTIONS (1)
  - Mononuclear cell count decreased [Unknown]

NARRATIVE: CASE EVENT DATE: 20210602
